FAERS Safety Report 11442399 (Version 5)
Quarter: 2018Q3

REPORT INFORMATION
  Report Type: Report from Study
  Country: US (occurrence: US)
  Receive Date: 20150901
  Receipt Date: 20180907
  Transmission Date: 20181010
  Serious: Yes (Death, Hospitalization)
  Sender: FDA-Public Use
  Company Number: US-ACTELION-A-US2015-123231

PATIENT
  Age: 58 Year
  Sex: Female

DRUGS (12)
  1. TRACLEER [Suspect]
     Active Substance: BOSENTAN
     Indication: PULMONARY ARTERIAL HYPERTENSION
     Dosage: 125 MG, BID
     Route: 048
     Dates: end: 20180830
  2. REVATIO [Concomitant]
     Active Substance: SILDENAFIL CITRATE
  3. COUMADIN [Concomitant]
     Active Substance: WARFARIN SODIUM
  4. NORVASC [Concomitant]
     Active Substance: AMLODIPINE BESYLATE
  5. MULTIVITAMINS W/MINERALS [Concomitant]
     Active Substance: MINERALS\VITAMINS
  6. SYNTHROID [Concomitant]
     Active Substance: LEVOTHYROXINE SODIUM
  7. PREDNISONE. [Concomitant]
     Active Substance: PREDNISONE
  8. REMODULIN [Concomitant]
     Active Substance: TREPROSTINIL
  9. TRICOR [Concomitant]
     Active Substance: FENOFIBRATE
  10. LASIX [Concomitant]
     Active Substance: FUROSEMIDE
  11. PEPCID [Concomitant]
     Active Substance: FAMOTIDINE
  12. COLACE [Concomitant]
     Active Substance: DOCUSATE SODIUM

REACTIONS (8)
  - Hyponatraemia [Unknown]
  - Confusional state [Unknown]
  - Chronic obstructive pulmonary disease [Recovering/Resolving]
  - Hypotension [Unknown]
  - Urinary tract infection [Unknown]
  - Blood disorder [Not Recovered/Not Resolved]
  - Death [Fatal]
  - Dyspnoea [Recovering/Resolving]

NARRATIVE: CASE EVENT DATE: 20150820
